FAERS Safety Report 5375538-3 (Version None)
Quarter: 2007Q2

REPORT INFORMATION
  Report Type: 
  Country: None (occurrence: None)
  Receive Date: 20070629
  Receipt Date: 20070620
  Transmission Date: 20071010
  Serious: Yes (Hospitalization)
  Sender: FDA-Public Use
  Company Number: US-ALLERGAN-0706607US

PATIENT
  Sex: Female

DRUGS (1)
  1. BOTOX COSMETIC [Suspect]
     Indication: SKIN WRINKLING
     Dosage: 33.5 UNITS, SINGLE
     Route: 030
     Dates: start: 20070420, end: 20070420

REACTIONS (2)
  - CELLULITIS [None]
  - MASTOIDITIS [None]
